FAERS Safety Report 12208867 (Version 1)
Quarter: 2016Q1

REPORT INFORMATION
  Report Type: Report from Study
  Country: US (occurrence: US)
  Receive Date: 20160324
  Receipt Date: 20160324
  Transmission Date: 20160526
  Serious: Yes (Life-Threatening, Hospitalization)
  Sender: FDA-Public Use
  Company Number: US-ACTELION-A-NJ2014-107765

PATIENT
  Age: 30 Year
  Sex: Female

DRUGS (1)
  1. TRACLEER [Suspect]
     Active Substance: BOSENTAN
     Indication: PULMONARY ARTERIAL HYPERTENSION
     Dosage: UNK
     Route: 048
     Dates: start: 2009, end: 20160317

REACTIONS (11)
  - Systemic lupus erythematosus [Recovered/Resolved]
  - Pericardial effusion [Unknown]
  - Dyspnoea [Unknown]
  - Serositis [Recovered/Resolved]
  - Hypoxia [Recovered/Resolved]
  - Alanine aminotransferase increased [Recovered/Resolved]
  - Pleural effusion [Unknown]
  - Chest pain [Unknown]
  - Feeling abnormal [Unknown]
  - Fatigue [Unknown]
  - Dyspnoea [Recovered/Resolved]
